FAERS Safety Report 4728486-3 (Version None)
Quarter: 2005Q3

REPORT INFORMATION
  Report Type: 
  Country: None (occurrence: None)
  Receive Date: 20050729
  Receipt Date: 20040907
  Transmission Date: 20060218
  Serious: No
  Sender: FDA-Public Use
  Company Number: US-GLAXOSMITHKLINE-A0524738A

PATIENT
  Sex: Female

DRUGS (4)
  1. ZANTAC [Suspect]
     Indication: DRUG USE FOR UNKNOWN INDICATION
     Route: 048
  2. NEURONTIN [Concomitant]
  3. EFFEXOR [Concomitant]
  4. ALBUTEROL [Concomitant]

REACTIONS (1)
  - DRUG SCREEN POSITIVE [None]
